FAERS Safety Report 10006662 (Version 1)
Quarter: 2014Q1

REPORT INFORMATION
  Report Type: Spontaneous
  Country: US (occurrence: US)
  Receive Date: 20140313
  Receipt Date: 20140313
  Transmission Date: 20141002
  Serious: No
  Sender: FDA-Public Use
  Company Number: US-PFIZER INC-2014073477

PATIENT
  Age: 52 Year
  Sex: Female
  Weight: 79.37 kg

DRUGS (2)
  1. VENLAFAXINE HCL [Suspect]
     Indication: HOT FLUSH
     Dosage: 75 MG, DAILY
  2. VENLAFAXINE HCL [Suspect]
     Dosage: 150 MG, DAILY
     Dates: start: 201212

REACTIONS (1)
  - Chest pain [Unknown]
